FAERS Safety Report 25480669 (Version 1)
Quarter: 2025Q2

REPORT INFORMATION
  Report Type: Spontaneous
  Country: US (occurrence: US)
  Receive Date: 20250625
  Receipt Date: 20250625
  Transmission Date: 20250716
  Serious: No
  Sender: SANOFI AVENTIS
  Company Number: US-SA-2025SA178495

PATIENT
  Sex: Female
  Weight: 36.68 kg

DRUGS (2)
  1. DUPIXENT [Suspect]
     Active Substance: DUPILUMAB
     Indication: Dermatitis atopic
     Dosage: 200 MG, QOW
     Route: 058
  2. SKYTROFA [Concomitant]
     Active Substance: LONAPEGSOMATROPIN-TCGD

REACTIONS (2)
  - Pruritus [Unknown]
  - Off label use [Unknown]
